FAERS Safety Report 10470836 (Version 1)
Quarter: 2014Q3

REPORT INFORMATION
  Report Type: Spontaneous
  Country: US (occurrence: None)
  Receive Date: 20140917
  Receipt Date: 20140917
  Transmission Date: 20150326
  Serious: No
  Sender: FDA-Public Use
  Company Number: 2014CT000086

PATIENT
  Age: 60 Year
  Sex: Female

DRUGS (1)
  1. KORLYM [Suspect]
     Active Substance: MIFEPRISTONE
     Indication: CUSHING^S SYNDROME

REACTIONS (6)
  - Gastrointestinal disorder [None]
  - Activities of daily living impaired [None]
  - Bipolar disorder [None]
  - Feeling of body temperature change [None]
  - Depression [None]
  - Anxiety [None]

NARRATIVE: CASE EVENT DATE: 201406
